FAERS Safety Report 6012513-X (Version None)
Quarter: 2008Q4

REPORT INFORMATION
  Report Type: 
  Country: None (occurrence: None)
  Receive Date: 20081218
  Receipt Date: 20081211
  Transmission Date: 20090506
  Serious: Yes (Death, Hospitalization, Other)
  Sender: FDA-Public Use
  Company Number: IT-ROXANE LABORATORIES, INC.-2008-RO-00403RO

PATIENT
  Age: 65 Year
  Sex: Male

DRUGS (16)
  1. FLUCONAZOLE [Suspect]
     Indication: EVIDENCE BASED TREATMENT
     Route: 042
  2. FLUCONAZOLE [Suspect]
     Dosage: 100MG
     Route: 042
  3. MYCOPHENOLATE MOFETIL [Suspect]
     Indication: IMMUNOSUPPRESSANT DRUG THERAPY
  4. FUROSEMIDE [Suspect]
  5. CYCLOSPORINE [Suspect]
     Indication: IMMUNOSUPPRESSANT DRUG THERAPY
  6. PIPERACILLIN AND TAZOBACTAM [Suspect]
     Indication: EVIDENCE BASED TREATMENT
  7. TEICOPLANIN [Suspect]
     Indication: EVIDENCE BASED TREATMENT
  8. EVEROLIMUS [Suspect]
     Indication: IMMUNOSUPPRESSANT DRUG THERAPY
     Route: 048
  9. EVEROLIMUS [Suspect]
     Dosage: .25MG
     Route: 048
  10. RANITIDINE [Suspect]
  11. HEPARIN [Suspect]
  12. METHYLPREDNISOLONE 16MG TAB [Suspect]
  13. OCTREOTIDE ACETATE [Suspect]
  14. INSULIN [Suspect]
  15. VORICONAZOLE [Suspect]
     Indication: LUNG INFECTION
     Route: 042
  16. VORICONAZOLE [Suspect]
     Dosage: 400MG
     Route: 042

REACTIONS (12)
  - DEATH [None]
  - DRUG INTERACTION [None]
  - DUODENAL PERFORATION [None]
  - GRAFT DYSFUNCTION [None]
  - HYPOTENSION [None]
  - LUNG INFECTION [None]
  - POST PROCEDURAL BILE LEAK [None]
  - PULMONARY EMBOLISM [None]
  - RENAL FAILURE ACUTE [None]
  - RESPIRATORY FAILURE [None]
  - RETROPERITONEAL HAEMATOMA [None]
  - SEPSIS [None]
